FAERS Safety Report 18744427 (Version 1)
Quarter: 2021Q1

REPORT INFORMATION
  Report Type: Spontaneous
  Country: CZ (occurrence: CZ)
  Receive Date: 20210115
  Receipt Date: 20210115
  Transmission Date: 20210419
  Serious: Yes (Other)
  Sender: FDA-Public Use
  Company Number: CZ-AUROBINDO-AUR-APL-2021-001498

PATIENT
  Age: 60 Year
  Sex: Female

DRUGS (4)
  1. GLIMEPIRIDE. [Suspect]
     Active Substance: GLIMEPIRIDE
     Dosage: 1 MILLIGRAM, ONCE A DAY (AFTER ANOTHER THREE MONTHS, WE DISCONTINUED GLIMEPIRIDE COMPLETELY AND SITA
     Route: 065
  2. GLIMEPIRIDE. [Suspect]
     Active Substance: GLIMEPIRIDE
     Dosage: 4 MILLIGRAM, ONCE A DAY (DUE TO THE LEVEL OF GLYCATED HEMOGLOBIN (61 MMOL/MOL), WE STARTED TREATMENT
     Route: 065
  3. GLIMEPIRIDE. [Suspect]
     Active Substance: GLIMEPIRIDE
     Indication: TYPE 2 DIABETES MELLITUS
     Dosage: 2 MILLIGRAM, ONCE A DAY (WE TRIED TO KEEP SITAGLIPTIN AT THE USUAL DOSE OF 50 MG ONCE A DAY AND HALV
     Route: 065
  4. SITAGLIPTIN [Concomitant]
     Active Substance: SITAGLIPTIN
     Indication: TYPE 2 DIABETES MELLITUS
     Dosage: 50 MILLIGRAM, ONCE A DAY
     Route: 065

REACTIONS (2)
  - Diabetic metabolic decompensation [Recovered/Resolved]
  - Weight increased [Recovered/Resolved]
